FAERS Safety Report 24390808 (Version 1)
Quarter: 2024Q4

REPORT INFORMATION
  Report Type: Spontaneous
  Country: BR (occurrence: BR)
  Receive Date: 20241003
  Receipt Date: 20241003
  Transmission Date: 20250115
  Serious: Yes (Other)
  Sender: AMGEN
  Company Number: BR-AMGEN-BRASP2024193597

PATIENT
  Age: 36 Year
  Sex: Female

DRUGS (3)
  1. FILGRASTIM [Suspect]
     Active Substance: FILGRASTIM
     Indication: Prophylaxis
     Dosage: 300 MICROGRAM, QD, DAYS 4-8
     Route: 058
  2. GEMCITABINE [Concomitant]
     Active Substance: GEMCITABINE
     Indication: Renal cell carcinoma
     Dosage: DAYS 1 AND 8: INTRAVENOUS GEMCITABINE 1,000 MG/M2 (FULL DOSE), FOLLOWED 2 H AFTER INFUSION BY 3-H HA
     Route: 042
  3. CISPLATIN [Concomitant]
     Active Substance: CISPLATIN
     Indication: Renal cell carcinoma
     Dosage: DAY 2: INTRAVENOUS CISPLATIN 35 MG/M2 (HALF DOSE), FOLLOWED 1 H AFTER INFUSION BY 3-H HAEMODIALYSIS
     Route: 042

REACTIONS (2)
  - Neutropenia [Unknown]
  - Device related sepsis [Unknown]
